FAERS Safety Report 11546760 (Version 1)
Quarter: 2015Q3

REPORT INFORMATION
  Report Type: Spontaneous
  Country: US (occurrence: US)
  Receive Date: 20150924
  Receipt Date: 20150924
  Transmission Date: 20151125
  Serious: No
  Sender: FDA-Public Use
  Company Number: US-PFIZER INC-2015293686

PATIENT
  Sex: Female
  Weight: 50 kg

DRUGS (4)
  1. VIAGRA [Suspect]
     Active Substance: SILDENAFIL CITRATE
     Dosage: 100 MG, UNK
  2. VIAGRA [Suspect]
     Active Substance: SILDENAFIL CITRATE
     Dosage: 50 MG, UNK (SOMETIMES TAKE 50MG)
  3. VIAGRA [Suspect]
     Active Substance: SILDENAFIL CITRATE
     Indication: SEXUAL DYSFUNCTION
     Dosage: 25 MG, AS NEEDED (SHE SPLIT A 50 MG IN HALF AND SHE JUST TOOK HALF)
  4. LAMICTAL [Concomitant]
     Active Substance: LAMOTRIGINE
     Dosage: UNK

REACTIONS (7)
  - Hyperhidrosis [Unknown]
  - Thirst [Unknown]
  - Product use issue [Unknown]
  - Sensation of blood flow [Unknown]
  - Erythema [Unknown]
  - Drug effect incomplete [Unknown]
  - Intentional product misuse [Unknown]
